FAERS Safety Report 7631003-1 (Version None)
Quarter: 2011Q3

REPORT INFORMATION
  Report Type: 
  Country: None (occurrence: None)
  Receive Date: 20110725
  Receipt Date: 20090312
  Transmission Date: 20111222
  Serious: No
  Sender: FDA-Public Use
  Company Number: 2009BI007789

PATIENT
  Sex: Male

DRUGS (2)
  1. TYSABRI [Suspect]
     Indication: MULTIPLE SCLEROSIS
     Route: 042
     Dates: start: 20090217, end: 20100114
  2. TYSABRI [Suspect]
     Route: 042
     Dates: start: 20100622

REACTIONS (5)
  - MUSCLE SPASMS [None]
  - NASAL DISCOMFORT [None]
  - HEADACHE [None]
  - RHINALGIA [None]
  - EYE PAIN [None]
